FAERS Safety Report 11385482 (Version 1)
Quarter: 2015Q3

REPORT INFORMATION
  Report Type: Spontaneous
  Country: US (occurrence: US)
  Receive Date: 20150815
  Receipt Date: 20150815
  Transmission Date: 20151125
  Serious: Yes (Other)
  Sender: FDA-Public Use
  Company Number: US-JNJFOC-20150803718

PATIENT

DRUGS (2)
  1. ACETAMINOPHEN (APAP) [Suspect]
     Active Substance: ACETAMINOPHEN
     Route: 065
  2. ACETAMINOPHEN (APAP) [Suspect]
     Active Substance: ACETAMINOPHEN
     Indication: PRODUCT USED FOR UNKNOWN INDICATION
     Route: 065

REACTIONS (4)
  - Total bile acids increased [Unknown]
  - Drug-induced liver injury [Unknown]
  - Overdose [Unknown]
  - Alanine aminotransferase increased [None]
